FAERS Safety Report 11345770 (Version 1)
Quarter: 2015Q3

REPORT INFORMATION
  Report Type: Spontaneous
  Country: US (occurrence: US)
  Receive Date: 20150806
  Receipt Date: 20150806
  Transmission Date: 20151125
  Serious: No
  Sender: FDA-Public Use
  Company Number: US-ABBVIE-15P-163-1371170-00

PATIENT
  Sex: Male

DRUGS (1)
  1. DEPAKOTE [Suspect]
     Active Substance: DIVALPROEX SODIUM
     Indication: PRODUCT USED FOR UNKNOWN INDICATION
     Route: 065

REACTIONS (11)
  - Gynaecomastia [Not Recovered/Not Resolved]
  - Weight increased [Not Recovered/Not Resolved]
  - Peripheral swelling [Unknown]
  - Depression [Unknown]
  - Suicidal ideation [Unknown]
  - Vision blurred [Unknown]
  - Affect lability [Not Recovered/Not Resolved]
  - Homicidal ideation [Unknown]
  - Social avoidant behaviour [Unknown]
  - Oedema peripheral [Unknown]
  - Amnesia [Not Recovered/Not Resolved]
